FAERS Safety Report 7882066-X (Version None)
Quarter: 2011Q4

REPORT INFORMATION
  Report Type: 
  Country: None (occurrence: None)
  Receive Date: 20111101
  Receipt Date: 20110607
  Transmission Date: 20120403
  Serious: No
  Sender: FDA-Public Use
  Company Number: US-AMGEN-USASP2011029460

PATIENT
  Age: 43 Year
  Sex: Female

DRUGS (4)
  1. HUMIRA [Concomitant]
     Dosage: UNK
  2. ENBREL [Suspect]
     Indication: RHEUMATOID ARTHRITIS
     Dosage: 25 MG, 2 TIMES/WK
     Dates: start: 20041117
  3. ENBREL [Suspect]
     Indication: ANKYLOSING SPONDYLITIS
  4. SIMPONI [Concomitant]
     Dosage: UNK

REACTIONS (14)
  - THERAPEUTIC RESPONSE DECREASED [None]
  - ERYTHEMA [None]
  - HYPOAESTHESIA [None]
  - BODY TINEA [None]
  - CARPAL TUNNEL SYNDROME [None]
  - ASTHENIA [None]
  - NAUSEA [None]
  - SWELLING [None]
  - BLISTER [None]
  - FEELING HOT [None]
  - TINEA VERSICOLOUR [None]
  - INSOMNIA [None]
  - PARAESTHESIA [None]
  - HERPES ZOSTER [None]
